FAERS Safety Report 4326141-5 (Version None)
Quarter: 2004Q1

REPORT INFORMATION
  Report Type: 
  Country: None (occurrence: None)
  Receive Date: 20040324
  Receipt Date: 20040309
  Transmission Date: 20041129
  Serious: No
  Sender: FDA-Public Use
  Company Number: 04H-028-0253425-00

PATIENT

DRUGS (4)
  1. NITROGLYCERIN [Suspect]
     Dosage: INTRAVENOUS; EVERY 12H, INTRAVENOUS
     Route: 042
  2. HEPARIN SODIUM [Suspect]
     Indication: ANTICOAGULANT THERAPY
     Dosage: SEE IMAGE
     Route: 042
  3. ASPIRIN [Concomitant]
  4. 5% DEXTROSE/WATER [Concomitant]

REACTIONS (2)
  - HAEMOGLOBIN DECREASED [None]
  - HAEMORRHAGE [None]
